FAERS Safety Report 16452490 (Version 2)
Quarter: 2020Q1

REPORT INFORMATION
  Report Type: Report from Study
  Country: US (occurrence: US)
  Receive Date: 20190619
  Receipt Date: 20200121
  Transmission Date: 20200409
  Serious: Yes (Death, Other)
  Sender: FDA-Public Use
  Company Number: US-ACTELION-A-NJ2019-191817

PATIENT
  Age: 67 Year
  Sex: Female

DRUGS (18)
  1. OXYCODONE [Concomitant]
     Active Substance: OXYCODONE
  2. SENNA-S [Concomitant]
     Active Substance: DOCUSATE SODIUM\SENNOSIDES
  3. TRUSOPT [Concomitant]
     Active Substance: DORZOLAMIDE HYDROCHLORIDE
  4. GABAPENTIN. [Concomitant]
     Active Substance: GABAPENTIN
  5. LISINOPRIL. [Concomitant]
     Active Substance: LISINOPRIL
  6. BENZONATATE. [Concomitant]
     Active Substance: BENZONATATE
  7. METFORMIN [Concomitant]
     Active Substance: METFORMIN HYDROCHLORIDE
     Indication: ESSENTIAL HYPERTENSION
  8. PAROXETINE. [Concomitant]
     Active Substance: PAROXETINE
  9. ASPIRIN. [Concomitant]
     Active Substance: ASPIRIN
  10. ALPHAGAN P [Concomitant]
     Active Substance: BRIMONIDINE TARTRATE
  11. METOPROLOL. [Concomitant]
     Active Substance: METOPROLOL
  12. OPSUMIT [Suspect]
     Active Substance: MACITENTAN
     Indication: PULMONARY ARTERIAL HYPERTENSION
     Dosage: 10 MG, QD
     Route: 048
     Dates: start: 20161026, end: 20191113
  13. ATORVASTATIN [Concomitant]
     Active Substance: ATORVASTATIN
  14. LEVOTHYROXINE. [Concomitant]
     Active Substance: LEVOTHYROXINE
  15. MEGESTROL [Concomitant]
     Active Substance: MEGESTROL
  16. SILDENAFIL. [Concomitant]
     Active Substance: SILDENAFIL
  17. COLCHICINE. [Concomitant]
     Active Substance: COLCHICINE
  18. XALATAN [Concomitant]
     Active Substance: LATANOPROST

REACTIONS (5)
  - Back pain [Unknown]
  - Death [Fatal]
  - Lung disorder [Not Recovered/Not Resolved]
  - Lung adenocarcinoma recurrent [Not Recovered/Not Resolved]
  - Transfusion [Unknown]

NARRATIVE: CASE EVENT DATE: 20190309
